FAERS Safety Report 8516976-7 (Version None)
Quarter: 2012Q3

REPORT INFORMATION
  Report Type: 
  Country: None (occurrence: None)
  Receive Date: 20120718
  Receipt Date: 20120711
  Transmission Date: 20120928
  Serious: Yes (Death)
  Sender: FDA-Public Use
  Company Number: HU-PFIZER INC-2012167979

PATIENT
  Age: 16 Year
  Sex: Female

DRUGS (2)
  1. TIROXINA [Concomitant]
  2. CORTEF [Suspect]
     Indication: ADRENAL DISORDER

REACTIONS (3)
  - CARDIAC DEATH [None]
  - HYPERKALAEMIA [None]
  - NASOPHARYNGITIS [None]
